FAERS Safety Report 4820913-6 (Version None)
Quarter: 2005Q4

REPORT INFORMATION
  Report Type: 
  Country: None (occurrence: None)
  Receive Date: 20051104
  Receipt Date: 20051017
  Transmission Date: 20060501
  Serious: Yes (Disabling)
  Sender: FDA-Public Use
  Company Number: US-AVENTIS-200518057US

PATIENT
  Sex: Female

DRUGS (3)
  1. LOVENOX [Suspect]
     Indication: PROPHYLAXIS
     Dosage: DOSE: UNK
     Route: 042
  2. ANAESTHETICS [Concomitant]
     Dosage: DOSE: UNK
  3. ANAESTHETICS [Concomitant]
     Dosage: DOSE: UNK

REACTIONS (7)
  - ARACHNOIDITIS [None]
  - ASTHENIA [None]
  - DIPLEGIA [None]
  - MEDICATION ERROR [None]
  - PARAESTHESIA [None]
  - PARALYSIS [None]
  - POST PROCEDURAL COMPLICATION [None]
